FAERS Safety Report 10426158 (Version 2)
Quarter: 2014Q3

REPORT INFORMATION
  Report Type: Spontaneous
  Country: US (occurrence: US)
  Receive Date: 20140903
  Receipt Date: 20140903
  Transmission Date: 20150326
  Serious: No
  Sender: FDA-Public Use
  Company Number: US-AMGEN-USASP2014031564

PATIENT
  Age: 53 Year
  Sex: Female

DRUGS (2)
  1. ENBREL [Suspect]
     Active Substance: ETANERCEPT
     Indication: PSORIASIS
     Dosage: 50 MG, QWK
     Route: 065
     Dates: start: 20140401, end: 20140426
  2. ENBREL [Suspect]
     Active Substance: ETANERCEPT
     Indication: ARTHRITIS

REACTIONS (8)
  - Injection site erythema [Not Recovered/Not Resolved]
  - Injection site discolouration [Not Recovered/Not Resolved]
  - Pain in extremity [Not Recovered/Not Resolved]
  - Injection site induration [Recovered/Resolved]
  - Injection site pruritus [Not Recovered/Not Resolved]
  - Injection site swelling [Recovered/Resolved]
  - Injection site bruising [Not Recovered/Not Resolved]
  - Peripheral swelling [Not Recovered/Not Resolved]

NARRATIVE: CASE EVENT DATE: 201404
